FAERS Safety Report 15738893 (Version 2)
Quarter: 2019Q1

REPORT INFORMATION
  Report Type: Spontaneous
  Country: BE (occurrence: BE)
  Receive Date: 20181219
  Receipt Date: 20190116
  Transmission Date: 20190417
  Serious: Yes (Hospitalization)
  Sender: FDA-Public Use
  Company Number: BE-ASTRAZENECA-2018SF63512

PATIENT
  Age: 74 Year
  Sex: Male

DRUGS (10)
  1. CRESTOR [Suspect]
     Active Substance: ROSUVASTATIN CALCIUM
     Indication: HYPERCHOLESTEROLAEMIA
     Route: 048
  2. ZYTIGA [Suspect]
     Active Substance: ABIRATERONE ACETATE
     Indication: METASTASES TO BONE
     Route: 048
     Dates: start: 20181003
  3. PREDNISON [Concomitant]
     Active Substance: PREDNISONE
     Indication: ADENOCARCINOMA
     Route: 048
     Dates: start: 20181003
  4. ZYTIGA [Suspect]
     Active Substance: ABIRATERONE ACETATE
     Indication: ADENOCARCINOMA
     Route: 048
     Dates: start: 20181003
  5. FORZATEN/HCT [Concomitant]
     Dosage: STRENGTH: 20 MG/5 MG/12,5 MG, 1 DF DAILY
     Route: 048
  6. DEGARELIX [Concomitant]
     Active Substance: DEGARELIX
  7. CARDIOASPIRINE [Concomitant]
     Active Substance: ASPIRIN
     Route: 048
  8. PANTOMED [Concomitant]
     Route: 048
  9. PREDNISON [Concomitant]
     Active Substance: PREDNISONE
     Indication: METASTASES TO BONE
     Route: 048
     Dates: start: 20181003
  10. SELOZOK [Concomitant]
     Active Substance: METOPROLOL SUCCINATE

REACTIONS (5)
  - Drug interaction [Unknown]
  - Acute kidney injury [Unknown]
  - Myalgia [Unknown]
  - Hypokalaemia [Unknown]
  - Rhabdomyolysis [Unknown]
